FAERS Safety Report 23508638 (Version 1)
Quarter: 2024Q1

REPORT INFORMATION
  Report Type: Spontaneous
  Country: FR (occurrence: FR)
  Receive Date: 20240209
  Receipt Date: 20240209
  Transmission Date: 20240409
  Serious: Yes (Other)
  Sender: FDA-Public Use
  Company Number: None

PATIENT
  Age: 61 Year
  Sex: Male

DRUGS (3)
  1. POSACONAZOLE [Suspect]
     Active Substance: POSACONAZOLE
     Indication: Product used for unknown indication
     Dosage: UNK
     Route: 048
     Dates: start: 20240101
  2. RYDAPT [Suspect]
     Active Substance: MIDOSTAURIN
     Indication: Acute myeloid leukaemia
     Dosage: 25 MILLIGRAM, QD
     Route: 048
     Dates: start: 20240102
  3. ACUPAN [Suspect]
     Active Substance: NEFOPAM HYDROCHLORIDE
     Indication: Pain
     Dosage: UNK
     Route: 042
     Dates: start: 20240107, end: 20240109

REACTIONS (2)
  - Cholestasis [Not Recovered/Not Resolved]
  - Psychomotor skills impaired [Recovered/Resolved]

NARRATIVE: CASE EVENT DATE: 20240107
